FAERS Safety Report 8728565 (Version 2)
Quarter: 2012Q4

REPORT INFORMATION
  Report Type: Spontaneous
  Country: US (occurrence: None)
  Receive Date: 20120731
  Receipt Date: 20121002
  Transmission Date: 20130627
  Serious: No
  Sender: FDA-Public Use
  Company Number: 2012P1050406

PATIENT
  Age: 11 Year
  Sex: Female
  Weight: 45.36 kg

DRUGS (2)
  1. DIPHENHYDRAMINE HYDROCHLORIDE [Suspect]
     Indication: FOOD ALLERGY
     Route: 042
     Dates: start: 20120710, end: 20120710
  2. SOLUMEDROL [Concomitant]

REACTIONS (9)
  - Cough [None]
  - Dysphoria [None]
  - Formication [None]
  - Restlessness [None]
  - Crying [None]
  - Product quality issue [None]
  - Agitation [None]
  - Anxiety [None]
  - Product contamination [None]
